FAERS Safety Report 9702163 (Version 2)
Quarter: 2013Q4

REPORT INFORMATION
  Report Type: Spontaneous
  Country: US (occurrence: None)
  Receive Date: 20131119
  Receipt Date: 20131206
  Transmission Date: 20140711
  Serious: Yes (Hospitalization)
  Sender: FDA-Public Use
  Company Number: 2009179

PATIENT
  Sex: Male
  Weight: 88.18 kg

DRUGS (7)
  1. BUPIVACAINE HCL [Suspect]
     Indication: PAIN
     Dates: start: 20131029
  2. ORTHOVISC [Concomitant]
  3. BETADINE [Concomitant]
  4. ASPIRIN [Concomitant]
  5. CLOMIPRAMINE [Concomitant]
  6. HYZAAR [Concomitant]
  7. OMEPRAZOLE [Concomitant]

REACTIONS (7)
  - Pain [None]
  - Staphylococcus test positive [None]
  - Joint swelling [None]
  - Arthralgia [None]
  - Wrong technique in drug usage process [None]
  - Product sterility lacking [None]
  - Exposure via contaminated device [None]
